FAERS Safety Report 5430239-8 (Version None)
Quarter: 2007Q3

REPORT INFORMATION
  Report Type: 
  Country: None (occurrence: None)
  Receive Date: 20070731
  Receipt Date: 20070510
  Transmission Date: 20080115
  Serious: No
  Sender: FDA-Public Use
  Company Number: US200705003470

PATIENT
  Age: 71 Year
  Sex: Male
  Weight: 128.8 kg

DRUGS (2)
  1. BYETTA [Suspect]
     Indication: TYPE 2 DIABETES MELLITUS
     Dosage: 5 UG, 2/D, SUBCUTANEOUS
     Route: 058
     Dates: start: 20070101
  2. ALLOPURINOL [Concomitant]

REACTIONS (9)
  - ABDOMINAL PAIN UPPER [None]
  - ARTHRALGIA [None]
  - FALL [None]
  - INJECTION SITE PAIN [None]
  - JOINT INJURY [None]
  - JOINT SWELLING [None]
  - NAUSEA [None]
  - SYNOVIAL CYST [None]
  - WEIGHT DECREASED [None]
